FAERS Safety Report 16686166 (Version 1)
Quarter: 2019Q3

REPORT INFORMATION
  Report Type: Spontaneous
  Country: DE (occurrence: DE)
  Receive Date: 20190809
  Receipt Date: 20190809
  Transmission Date: 20191004
  Serious: Yes (Hospitalization, Other)
  Sender: FDA-Public Use
  Company Number: DE-TEVA-2019-DE-1086377

PATIENT
  Age: 93 Year
  Sex: Female

DRUGS (2)
  1. CANDESARTANCILEXETIL COMP.-CT 16 MG/12,5 MG TABLETTEN [Suspect]
     Active Substance: CANDESARTAN CILEXETIL\HYDROCHLOROTHIAZIDE
     Indication: HYPERTENSION
     Dosage: 1-0-1
     Route: 048
  2. BISOPROLOL-CT 2.5 MG TABLETTEN [Suspect]
     Active Substance: BISOPROLOL FUMARATE
     Indication: HYPERTENSION
     Dosage: 5 MILLIGRAM DAILY; FOR SEVERAL YEARS, 1 (BEFORE BREAKFAST-0-1
     Route: 048
     Dates: start: 20190730

REACTIONS (3)
  - Therapeutic product effect incomplete [Not Recovered/Not Resolved]
  - Syncope [Recovered/Resolved]
  - Loss of consciousness [Recovered/Resolved]

NARRATIVE: CASE EVENT DATE: 2019
